FAERS Safety Report 7211437-X (Version None)
Quarter: 2010Q4

REPORT INFORMATION
  Report Type: 
  Country: None (occurrence: None)
  Receive Date: 20101223
  Receipt Date: 20101210
  Transmission Date: 20110411
  Serious: Yes (Other)
  Sender: FDA-Public Use
  Company Number: 023127

PATIENT
  Sex: Male
  Weight: 41.5 kg

DRUGS (10)
  1. KEPPRA [Suspect]
     Indication: PARTIAL SEIZURES
     Dosage: (500 MG BID, VIA GASTRIC TUBE)
     Dates: start: 20101129, end: 20101201
  2. BARBITURATES [Concomitant]
  3. LIORESAL [Concomitant]
  4. THYRADIN S [Concomitant]
  5. CORTRIL /00028601/ [Concomitant]
  6. DESMOPRESSIN ACETATE [Concomitant]
  7. ENTERONON [Concomitant]
  8. MUCODYNE [Concomitant]
  9. AMBROXOL HYDROCHLORIDE [Concomitant]
  10. IONAL SODIUM [Concomitant]

REACTIONS (1)
  - STATUS EPILEPTICUS [None]
